FAERS Safety Report 5653625-X (Version None)
Quarter: 2008Q1

REPORT INFORMATION
  Report Type: 
  Country: None (occurrence: None)
  Receive Date: 20080306
  Receipt Date: 20080225
  Transmission Date: 20080703
  Serious: Yes (Other)
  Sender: FDA-Public Use
  Company Number: FR-ROCHE-549637

PATIENT
  Age: 47 Year
  Sex: Male

DRUGS (2)
  1. PEGASYS [Suspect]
     Dosage: FORM: INJECTABLE SOLUTION
     Route: 058
     Dates: start: 20070701
  2. KARDEGIC [Concomitant]
     Indication: PHLEBITIS

REACTIONS (1)
  - CATARACT [None]
